FAERS Safety Report 10853663 (Version 2)
Quarter: 2015Q1

REPORT INFORMATION
  Report Type: Spontaneous
  Country: US (occurrence: US)
  Receive Date: 20150223
  Receipt Date: 20150306
  Transmission Date: 20150721
  Serious: Yes (Death, Hospitalization, Other)
  Sender: FDA-Public Use
  Company Number: US-PFIZER INC-2015058041

PATIENT
  Age: 76 Year
  Sex: Female

DRUGS (1)
  1. SUTENT [Suspect]
     Active Substance: SUNITINIB MALATE
     Indication: METASTATIC RENAL CELL CARCINOMA
     Dosage: 50 MG, 4X/DAY (4 WEEK ON 2 OFF)
     Route: 048
     Dates: start: 20150109

REACTIONS (10)
  - Subdural haematoma [Fatal]
  - Metastatic renal cell carcinoma [Fatal]
  - Decreased appetite [Unknown]
  - Cardio-respiratory arrest [Fatal]
  - Skin discolouration [Unknown]
  - Hypertensive crisis [Unknown]
  - Head injury [Unknown]
  - Disease progression [Fatal]
  - Fatigue [Unknown]
  - Thrombocytopenia [Unknown]

NARRATIVE: CASE EVENT DATE: 2015
